FAERS Safety Report 7801745-3 (Version None)
Quarter: 2011Q4

REPORT INFORMATION
  Report Type: 
  Country: None (occurrence: None)
  Receive Date: 20111007
  Receipt Date: 20111004
  Transmission Date: 20120403
  Serious: Yes (Hospitalization)
  Sender: FDA-Public Use
  Company Number: JP-SANOFI-AVENTIS-2011SA064973

PATIENT
  Age: 77 Year
  Sex: Male
  Weight: 55 kg

DRUGS (7)
  1. LEVOLEUCOVORIN CALCIUM [Concomitant]
     Indication: RECTAL CANCER
     Route: 041
     Dates: end: 20110824
  2. ALOXI [Concomitant]
     Indication: PREMEDICATION
     Route: 041
     Dates: end: 20110824
  3. OXALIPLATIN [Suspect]
     Indication: RECTAL CANCER
     Route: 041
     Dates: end: 20110824
  4. FLUOROURACIL [Suspect]
     Dosage: CONTINOUS INFUSION
     Route: 041
     Dates: end: 20110824
  5. DEXAMETHASONE SODIUM PHOSPHATE [Concomitant]
     Indication: PREMEDICATION
     Route: 041
     Dates: end: 20110824
  6. EMEND [Concomitant]
     Indication: PROPHYLAXIS
     Route: 048
  7. FLUOROURACIL [Suspect]
     Indication: RECTAL CANCER
     Dosage: IN BOLUS
     Route: 040
     Dates: end: 20110824

REACTIONS (1)
  - TRANSIENT ISCHAEMIC ATTACK [None]
